FAERS Safety Report 4859864-X (Version None)
Quarter: 2005Q4

REPORT INFORMATION
  Report Type: 
  Country: None (occurrence: None)
  Receive Date: 20051215
  Receipt Date: 20051206
  Transmission Date: 20060501
  Serious: Yes (Hospitalization)
  Sender: FDA-Public Use
  Company Number: S05-USA-05129-01

PATIENT
  Age: 14 Year
  Sex: Female

DRUGS (5)
  1. LEXAPRO [Suspect]
     Indication: DEPRESSION
     Dosage: 20 MG QD PO
     Route: 048
     Dates: start: 20051108
  2. LEXAPRO [Suspect]
     Indication: DEPRESSION
     Dosage: 10 MG QD PO
     Route: 048
     Dates: start: 20051025, end: 20051107
  3. ALLEGRA [Concomitant]
  4. ALBUTEROL [Concomitant]
  5. SINGULAIR [Concomitant]

REACTIONS (10)
  - ABNORMAL BEHAVIOUR [None]
  - AGGRESSION [None]
  - INTENTIONAL SELF-INJURY [None]
  - MUSCLE TWITCHING [None]
  - OVERDOSE [None]
  - PANIC ATTACK [None]
  - SCREAMING [None]
  - SKIN LACERATION [None]
  - SUICIDAL IDEATION [None]
  - TREMOR [None]
